FAERS Safety Report 6770371-X (Version None)
Quarter: 2010Q2

REPORT INFORMATION
  Report Type: 
  Country: None (occurrence: None)
  Receive Date: 20100615
  Receipt Date: 20100610
  Transmission Date: 20101027
  Serious: Yes (Other)
  Sender: FDA-Public Use
  Company Number: DE-PFIZER INC-2010072532

PATIENT
  Age: 5 Year
  Sex: Male
  Weight: 34.6 kg

DRUGS (1)
  1. SOMATROPIN [Suspect]
     Indication: PRADER-WILLI SYNDROME
     Dosage: 0.8 MG, 1X/DAY
     Dates: start: 20080703

REACTIONS (1)
  - DILATATION VENTRICULAR [None]
